FAERS Safety Report 7964410-8 (Version None)
Quarter: 2011Q4

REPORT INFORMATION
  Report Type: 
  Country: None (occurrence: None)
  Receive Date: 20111208
  Receipt Date: 20111124
  Transmission Date: 20120403
  Serious: Yes (Other)
  Sender: FDA-Public Use
  Company Number: ES-CELGENEUS-144-21880-11060749

PATIENT
  Sex: Female
  Weight: 75 kg

DRUGS (19)
  1. CARFILZOMIB [Suspect]
     Indication: MYELODYSPLASTIC SYNDROME
  2. ADRIAMYCIN PFS [Concomitant]
     Indication: MYELODYSPLASTIC SYNDROME
     Dosage: 64 MILLIGRAM
     Route: 041
     Dates: start: 20110606, end: 20110606
  3. ENOXAPARINE SODIC [Concomitant]
     Indication: ANTICOAGULANT THERAPY
     Dosage: 40 MILLIGRAM
     Route: 058
     Dates: start: 20110530
  4. CARFILZOMIB [Suspect]
     Indication: MULTIPLE MYELOMA
     Route: 065
     Dates: start: 20110530
  5. VINCRISTINE [Concomitant]
     Indication: MYELODYSPLASTIC SYNDROME
     Dosage: 1 GRAM
     Route: 041
     Dates: start: 20110606, end: 20110606
  6. FILGRASTIM [Concomitant]
     Indication: NEUTROPENIA
     Dosage: 300 MICROGRAM
     Route: 058
     Dates: start: 20110526, end: 20110528
  7. LEVOTIROXIN [Concomitant]
     Indication: HYPOTHYROIDISM
     Dosage: 75 MILLIGRAM
     Route: 048
  8. ONDANSETRON [Concomitant]
     Indication: PROPHYLAXIS
     Dosage: 4 MILLIGRAM
     Route: 041
     Dates: start: 20110606, end: 20110606
  9. REVLIMID [Suspect]
     Indication: MULTIPLE MYELOMA
     Dosage: 25 MILLIGRAM
     Route: 048
     Dates: start: 20081020, end: 20100707
  10. DEXAMETHASONE [Suspect]
     Indication: MYELODYSPLASTIC SYNDROME
     Dosage: QD
     Route: 048
     Dates: start: 20110606, end: 20110615
  11. REVLIMID [Suspect]
     Dosage: 25 MILLIGRAM
     Route: 048
     Dates: start: 20110530, end: 20110602
  12. DEXAMETHASONE [Suspect]
     Indication: MULTIPLE MYELOMA
     Route: 065
     Dates: start: 20110530
  13. FUROSEMIDE [Concomitant]
     Indication: PROPHYLAXIS
     Dosage: 10 MICROGRAM
     Route: 048
  14. OMEPRAZOLE [Concomitant]
     Dosage: 20 MILLIGRAM
     Route: 048
     Dates: start: 20110530
  15. AMLODIPINE [Concomitant]
     Dosage: 5 MILLIGRAM
     Route: 048
  16. CALCIUM [Concomitant]
     Indication: PROPHYLAXIS
     Dosage: 500 MILLIGRAM
     Route: 048
  17. CARMUSTINE [Concomitant]
     Indication: MYELODYSPLASTIC SYNDROME
     Dosage: 48 MILLIGRAM
     Route: 041
     Dates: start: 20110606, end: 20110606
  18. LEVOFLOXACIN [Concomitant]
     Indication: ANTIBIOTIC PROPHYLAXIS
     Dosage: 500 MILLIGRAM
     Route: 048
     Dates: start: 20110530
  19. REVLIMID [Suspect]
     Indication: MYELODYSPLASTIC SYNDROME
     Dosage: 25 MILLIGRAM
     Route: 048
     Dates: start: 20100708, end: 20110126

REACTIONS (1)
  - MYELODYSPLASTIC SYNDROME [None]
